FAERS Safety Report 5290427-0 (Version None)
Quarter: 2007Q1

REPORT INFORMATION
  Report Type: 
  Country: None (occurrence: None)
  Receive Date: 20070112
  Receipt Date: 20070112
  Transmission Date: 20070707
  Serious: No
  Sender: FDA-Public Use
  Company Number: None

PATIENT
  Age: 58 Year
  Sex: Female

DRUGS (2)
  1. NYSTATIN [Suspect]
     Dosage: TABLET  100 TABLET COUNT BOTTLE SIZE
  2. NIASPAN [Suspect]
     Dosage: TABLET  100 TABLET COUNT BOTTLE SIZE

REACTIONS (2)
  - DRUG DISPENSING ERROR [None]
  - MEDICATION ERROR [None]
